FAERS Safety Report 8950872 (Version 1)
Quarter: 2012Q4

REPORT INFORMATION
  Report Type: Spontaneous
  Country: US (occurrence: None)
  Receive Date: 20121130
  Receipt Date: 20121130
  Transmission Date: 20130627
  Serious: Yes (Hospitalization)
  Sender: FDA-Public Use
  Company Number: None

PATIENT
  Age: 63 Year
  Sex: Female
  Weight: 94 kg

DRUGS (8)
  1. OXCARBAZEPINE [Suspect]
     Indication: BIPOLAR DISORDER
     Dosage: unknown-on prior to admit--
     Route: 048
  2. LAMOTRIGINE [Concomitant]
  3. AMLODIPINE [Concomitant]
  4. LEVOTHYROXINE [Concomitant]
  5. FAMOTIDINE [Concomitant]
  6. MULTIVITAMIN [Concomitant]
  7. SIMVASTATIN [Concomitant]
  8. ATENOLOL [Concomitant]

REACTIONS (2)
  - Mental status changes [None]
  - Delirium [None]
